FAERS Safety Report 5750480-4 (Version None)
Quarter: 2008Q2

REPORT INFORMATION
  Report Type: 
  Country: None (occurrence: None)
  Receive Date: 20080528
  Receipt Date: 20080225
  Transmission Date: 20081010
  Serious: No
  Sender: FDA-Public Use
  Company Number: US-KINGPHARMUSA00001-K200800254

PATIENT

DRUGS (1)
  1. AVINZA [Suspect]
     Indication: PAIN
     Dosage: 30 MG, BID

REACTIONS (1)
  - DRUG INEFFECTIVE [None]
